FAERS Safety Report 6189352-2 (Version None)
Quarter: 2009Q2

REPORT INFORMATION
  Report Type: 
  Country: None (occurrence: None)
  Receive Date: 20090512
  Receipt Date: 20090423
  Transmission Date: 20091009
  Serious: Yes (Death, Life-Threatening, Hospitalization, Other)
  Sender: FDA-Public Use
  Company Number: ADE# 09-161DPR

PATIENT
  Age: 63 Year
  Sex: Male

DRUGS (7)
  1. DIGOXIN [Suspect]
     Indication: CARDIAC DISORDER
     Dates: start: 20081105, end: 20090218
  2. LOVASTATIN [Concomitant]
  3. FUROSEMIDE 40MG [Concomitant]
  4. FOLIC ACID [Concomitant]
  5. LISINOPRIL [Concomitant]
  6. OXYGEN [Concomitant]
  7. GLYBURIDE [Concomitant]

REACTIONS (6)
  - ASTHENIA [None]
  - CARDIO-RESPIRATORY ARREST [None]
  - DIZZINESS [None]
  - DYSPNOEA [None]
  - GAIT DISTURBANCE [None]
  - MYOCARDIAL INFARCTION [None]
